FAERS Safety Report 7435480-0 (Version None)
Quarter: 2011Q2

REPORT INFORMATION
  Report Type: 
  Country: None (occurrence: None)
  Receive Date: 20110425
  Receipt Date: 20110421
  Transmission Date: 20111010
  Serious: Yes (Life-Threatening, Hospitalization)
  Sender: FDA-Public Use
  Company Number: PHHY2010JP84550

PATIENT
  Sex: Male

DRUGS (14)
  1. AMN107 [Suspect]
     Indication: CHRONIC MYELOID LEUKAEMIA
     Dosage: 800 MG, QD
     Route: 048
     Dates: start: 20091201, end: 20091206
  2. AMN107 [Suspect]
     Dosage: 200 MG, QD
     Route: 048
     Dates: start: 20091221, end: 20100105
  3. AMN107 [Suspect]
     Dosage: 200 MG, QD
     Route: 048
     Dates: start: 20100208, end: 20100509
  4. ASPIRIN [Concomitant]
     Dosage: 10 MG, UNK
     Route: 048
     Dates: start: 20091201
  5. LENDORMIN [Concomitant]
     Dosage: 0.25 MG, UNK
     Route: 048
     Dates: start: 20091201
  6. AMN107 [Suspect]
     Dosage: 200 MG, TIW
     Route: 048
     Dates: start: 20100619, end: 20100716
  7. AMLODIN [Concomitant]
     Dosage: 10 MG, UNK
     Route: 048
     Dates: start: 20091201
  8. AMN107 [Suspect]
     Dosage: 200 MG, BIW
     Route: 048
     Dates: start: 20100510, end: 20100618
  9. AMN107 [Suspect]
     Dosage: 200 MG EVERY OTHER DAY
     Route: 048
     Dates: start: 20100717, end: 20101126
  10. LASIX [Concomitant]
     Dosage: 80 MG, UNK
     Route: 048
     Dates: start: 20091201
  11. ZYLORIC ^FRESENIUS^ [Concomitant]
     Dosage: 100 MG, UNK
     Route: 048
     Dates: start: 20091201
  12. FRANDOL [Concomitant]
     Dosage: UNK
     Dates: start: 20091201
  13. CALCIUM POLYSTYRENE SULFONATE [Concomitant]
     Dosage: UNK
     Route: 048
     Dates: start: 20091201
  14. ITRIZOLE [Suspect]
     Dosage: 20 ML, DAILY
     Route: 048
     Dates: start: 20101123, end: 20101126

REACTIONS (9)
  - FEMUR FRACTURE [None]
  - CARDIAC FAILURE [None]
  - CARDIOMEGALY [None]
  - BLOOD CALCIUM DECREASED [None]
  - PULMONARY OEDEMA [None]
  - PLEURAL EFFUSION [None]
  - RENAL FAILURE [None]
  - GLUCOSE TOLERANCE IMPAIRED [None]
  - BLOOD GLUCOSE INCREASED [None]
